FAERS Safety Report 9175889 (Version 1)
Quarter: 2013Q1

REPORT INFORMATION
  Report Type: Spontaneous
  Country: US (occurrence: US)
  Receive Date: 20130320
  Receipt Date: 20130320
  Transmission Date: 20140127
  Serious: Yes (Other)
  Sender: FDA-Public Use
  Company Number: US-ELI_LILLY_AND_COMPANY-US201303003368

PATIENT
  Sex: Male

DRUGS (3)
  1. HUMALOG LISPRO [Suspect]
     Dosage: UNK UNK, UNKNOWN
     Dates: end: 2012
  2. HUMALOG LISPRO [Suspect]
     Indication: TYPE 1 DIABETES MELLITUS
     Dosage: UNK
     Dates: start: 2012
  3. LANTUS [Concomitant]

REACTIONS (11)
  - Hypoglycaemic unconsciousness [Recovered/Resolved]
  - Fall [Unknown]
  - Head injury [Unknown]
  - Insulin resistance [Not Recovered/Not Resolved]
  - Fall [Recovered/Resolved]
  - Pain [Unknown]
  - Spinal osteoarthritis [Recovered/Resolved]
  - Skeletal injury [Unknown]
  - Stress [Not Recovered/Not Resolved]
  - Drug effect incomplete [Not Recovered/Not Resolved]
  - Blood glucose increased [Not Recovered/Not Resolved]
